FAERS Safety Report 9929707 (Version 1)
Quarter: 2014Q1

REPORT INFORMATION
  Report Type: Spontaneous
  Country: JP (occurrence: JP)
  Receive Date: 20140227
  Receipt Date: 20140227
  Transmission Date: 20141002
  Serious: Yes (Disabling)
  Sender: FDA-Public Use
  Company Number: JP-GE HEALTHCARE MEDICAL DIAGNOSTICS-MSTR-PR-1402S-0005

PATIENT
  Sex: Male

DRUGS (2)
  1. METASTRON [Suspect]
     Indication: METASTATIC PAIN
     Dosage: DOSE NOT REPORTED
     Route: 042
  2. METASTRON [Suspect]
     Indication: THERAPEUTIC PROCEDURE

REACTIONS (1)
  - Pancytopenia [Not Recovered/Not Resolved]
